FAERS Safety Report 5828110-2 (Version None)
Quarter: 2008Q3

REPORT INFORMATION
  Report Type: 
  Country: None (occurrence: None)
  Receive Date: 20080729
  Receipt Date: 20080729
  Transmission Date: 20090109
  Serious: Yes (Death)
  Sender: FDA-Public Use
  Company Number: None

PATIENT
  Age: 83 Year
  Sex: Female
  Weight: 90.7194 kg

DRUGS (2)
  1. LORAZEPAM [Suspect]
     Indication: ANXIETY
     Dosage: 0.25 ML 6 HOURS BY MOUTH
     Route: 048
     Dates: start: 20080501, end: 20080509
  2. LORAZEPAM [Suspect]
     Indication: TREMOR
     Dosage: 0.25 ML 6 HOURS BY MOUTH
     Route: 048
     Dates: start: 20080501, end: 20080509

REACTIONS (1)
  - MEDICATION ERROR [None]
